FAERS Safety Report 5832398-1 (Version None)
Quarter: 2008Q3

REPORT INFORMATION
  Report Type: 
  Country: None (occurrence: None)
  Receive Date: 20080804
  Receipt Date: 20080723
  Transmission Date: 20090109
  Serious: Yes (Life-Threatening)
  Sender: FDA-Public Use
  Company Number: US-MERCK-0807USA04524

PATIENT
  Sex: Female

DRUGS (1)
  1. SINGULAIR [Suspect]
     Indication: RHINITIS ALLERGIC
     Route: 048

REACTIONS (2)
  - DEPRESSION [None]
  - SUICIDAL IDEATION [None]
